FAERS Safety Report 25100968 (Version 1)
Quarter: 2025Q1

REPORT INFORMATION
  Report Type: Spontaneous
  Country: FR (occurrence: FR)
  Receive Date: 20250320
  Receipt Date: 20250320
  Transmission Date: 20250409
  Serious: Yes (Hospitalization)
  Sender: PFIZER
  Company Number: None

PATIENT
  Age: 87 Year
  Sex: Male
  Weight: 80 kg

DRUGS (22)
  1. RITUXIMAB [Suspect]
     Active Substance: RITUXIMAB
     Route: 042
     Dates: start: 20241014, end: 20241014
  2. RITUXIMAB [Suspect]
     Active Substance: RITUXIMAB
     Route: 042
     Dates: start: 20241104, end: 20241104
  3. RITUXIMAB [Suspect]
     Active Substance: RITUXIMAB
     Route: 042
     Dates: start: 20241125, end: 20241125
  4. RITUXIMAB [Suspect]
     Active Substance: RITUXIMAB
     Route: 042
     Dates: start: 20241216, end: 20241216
  5. CYCLOPHOSPHAMIDE [Suspect]
     Active Substance: CYCLOPHOSPHAMIDE
     Indication: Monoclonal gammopathy
     Dosage: 350 MG, 1X/DAY FROM DAY 2 TO DAY 6
     Route: 048
     Dates: start: 20241015, end: 20241019
  6. CYCLOPHOSPHAMIDE [Suspect]
     Active Substance: CYCLOPHOSPHAMIDE
     Dosage: 350 MG, 1X/DAY FROM DAY 2 TO DAY 6
     Route: 048
     Dates: start: 20241105, end: 20241110
  7. CYCLOPHOSPHAMIDE [Suspect]
     Active Substance: CYCLOPHOSPHAMIDE
     Dosage: 350 MG, 1X/DAY FROM DAY 2 TO DAY 6
     Route: 048
     Dates: start: 20241126, end: 20241130
  8. CYCLOPHOSPHAMIDE [Suspect]
     Active Substance: CYCLOPHOSPHAMIDE
     Dosage: 350 MG, 1X/DAY FROM DAY 2 TO DAY 6
     Route: 048
     Dates: start: 20241217, end: 20241221
  9. DEXAMETHASONE ACETATE [Suspect]
     Active Substance: DEXAMETHASONE ACETATE
     Indication: Monoclonal gammopathy
     Route: 042
     Dates: start: 20241014, end: 20241014
  10. DEXAMETHASONE ACETATE [Suspect]
     Active Substance: DEXAMETHASONE ACETATE
     Route: 042
     Dates: start: 20241104, end: 20241104
  11. DEXAMETHASONE ACETATE [Suspect]
     Active Substance: DEXAMETHASONE ACETATE
     Route: 042
     Dates: start: 20241125, end: 20241125
  12. DEXAMETHASONE ACETATE [Suspect]
     Active Substance: DEXAMETHASONE ACETATE
     Route: 042
     Dates: start: 20241216, end: 20241216
  13. ATENOLOL [Concomitant]
     Active Substance: ATENOLOL
  14. AMIODARONE [Concomitant]
     Active Substance: AMIODARONE
  15. LERCANIDIPINE [Concomitant]
     Active Substance: LERCANIDIPINE
  16. ELIQUIS [Concomitant]
     Active Substance: APIXABAN
  17. CLOPIDOGREL [Concomitant]
     Active Substance: CLOPIDOGREL BISULFATE
  18. LIPTRUZET [Concomitant]
     Active Substance: ATORVASTATIN CALCIUM\EZETIMIBE
  19. PANTOPRAZOLE [Concomitant]
     Active Substance: PANTOPRAZOLE
  20. PREGABALIN [Concomitant]
     Active Substance: PREGABALIN
  21. VALACYCLOVIR HYDROCHLORIDE [Concomitant]
     Active Substance: VALACYCLOVIR HYDROCHLORIDE
  22. LORATADINE [Concomitant]
     Active Substance: LORATADINE

REACTIONS (1)
  - Acute myocardial infarction [Recovered/Resolved]

NARRATIVE: CASE EVENT DATE: 20241115
